FAERS Safety Report 8799540 (Version 1)
Quarter: 2012Q4

REPORT INFORMATION
  Report Type: 
  Country: US (occurrence: US)
  Receive Date: 20120919
  Receipt Date: 20120919
  Transmission Date: 20130627
  Serious: No
  Sender: FDA-Public Use
  Company Number: US-PFIZER INC-2012231162

PATIENT

DRUGS (2)
  1. ZIPRASIDONE HCL [Suspect]
     Dosage: 20 mg, daily
  2. ZIPRASIDONE HCL [Suspect]
     Dosage: 30mg, daily

REACTIONS (2)
  - Off label use [Unknown]
  - Burning sensation [Unknown]
